FAERS Safety Report 18545238 (Version 2)
Quarter: 2020Q4

REPORT INFORMATION
  Report Type: Report from Study
  Country: GB (occurrence: GB)
  Receive Date: 20201125
  Receipt Date: 20201223
  Transmission Date: 20210114
  Serious: Yes (Other)
  Sender: FDA-Public Use
  Company Number: GB-SAMSUNG BIOEPIS-SB-2020-35239

PATIENT
  Sex: Male

DRUGS (1)
  1. IMRALDI [Suspect]
     Active Substance: ADALIMUMAB
     Indication: PSORIATIC ARTHROPATHY
     Route: 058
     Dates: start: 20200828

REACTIONS (6)
  - Fatigue [Unknown]
  - Insomnia [Unknown]
  - Eye irritation [Unknown]
  - Depressed mood [Unknown]
  - COVID-19 [Unknown]
  - Dyspepsia [Unknown]
